FAERS Safety Report 12503392 (Version 1)
Quarter: 2016Q2

REPORT INFORMATION
  Report Type: Spontaneous
  Country: JP (occurrence: JP)
  Receive Date: 20160628
  Receipt Date: 20160628
  Transmission Date: 20160815
  Serious: Yes (Other)
  Sender: FDA-Public Use
  Company Number: JP-SA-2016SA117182

PATIENT
  Sex: Female

DRUGS (1)
  1. FABRAZYME [Suspect]
     Active Substance: AGALSIDASE BETA
     Indication: FABRY^S DISEASE
     Route: 041

REACTIONS (10)
  - Fall [Unknown]
  - Dysarthria [Unknown]
  - Mental disorder [Unknown]
  - Hypoaesthesia oral [Unknown]
  - Haemorrhage [Unknown]
  - Hypoaesthesia [Unknown]
  - Hypertension [Unknown]
  - Pyrexia [Unknown]
  - Cerebral infarction [Unknown]
  - Blood cholesterol abnormal [Unknown]
